FAERS Safety Report 8182977-4 (Version None)
Quarter: 2012Q1

REPORT INFORMATION
  Report Type: 
  Country: None (occurrence: None)
  Receive Date: 20120305
  Receipt Date: 20111215
  Transmission Date: 20120608
  Serious: No
  Sender: FDA-Public Use
  Company Number: US-BRISTOL-MYERS SQUIBB COMPANY-16296196

PATIENT
  Age: 5 Decade
  Sex: Female

DRUGS (1)
  1. KOMBIGLYZE XR [Suspect]
     Dosage: 1 DF : 2.5/1000 UNITS NOS

REACTIONS (1)
  - ABDOMINAL DISCOMFORT [None]
